FAERS Safety Report 10304867 (Version 1)
Quarter: 2014Q3

REPORT INFORMATION
  Report Type: Spontaneous
  Country: US (occurrence: None)
  Receive Date: 20140710
  Receipt Date: 20140710
  Transmission Date: 20150326
  Serious: Yes (Life-Threatening, Hospitalization)
  Sender: FDA-Public Use
  Company Number: None

PATIENT
  Age: 53 Year
  Sex: Male
  Weight: 90.72 kg

DRUGS (1)
  1. INVEGA [Suspect]
     Active Substance: PALIPERIDONE
     Indication: PRODUCT USED FOR UNKNOWN INDICATION
     Dosage: 1 PILL  AT BEDTIME  TAKEN BY MOUTH
     Route: 048

REACTIONS (4)
  - Coma [None]
  - Dialysis [None]
  - Foaming at mouth [None]
  - Blood disorder [None]

NARRATIVE: CASE EVENT DATE: 20140709
